FAERS Safety Report 25969199 (Version 1)
Quarter: 2025Q4

REPORT INFORMATION
  Report Type: Spontaneous
  Country: US (occurrence: None)
  Receive Date: 20251027
  Receipt Date: 20251027
  Transmission Date: 20260117
  Serious: Yes (Other)
  Sender: FDA-CTU
  Company Number: None

PATIENT
  Age: 62 Year
  Sex: Female
  Weight: 64.5 kg

DRUGS (1)
  1. PREGABALIN [Suspect]
     Active Substance: PREGABALIN
     Indication: Neuralgia
     Dosage: 25 MG TWICE  DY ORAL?
     Route: 048
     Dates: start: 20251024, end: 20251025

REACTIONS (2)
  - Sinus bradycardia [None]
  - Therapy interrupted [None]

NARRATIVE: CASE EVENT DATE: 20251024
